FAERS Safety Report 12519719 (Version 10)
Quarter: 2016Q4

REPORT INFORMATION
  Report Type: Report from Study
  Country: GB (occurrence: GB)
  Receive Date: 20160630
  Receipt Date: 20161014
  Transmission Date: 20170207
  Serious: Yes (Hospitalization)
  Sender: FDA-Public Use
  Company Number: GB-EISAI MEDICAL RESEARCH-EC-2016-018044

PATIENT
  Age: 17 Year
  Sex: Female
  Weight: 47.5 kg

DRUGS (27)
  1. ETOPOSIDE. [Suspect]
     Active Substance: ETOPOSIDE
     Route: 041
     Dates: start: 20160908, end: 20160910
  2. METOCLOPRAMIDE. [Concomitant]
     Active Substance: METOCLOPRAMIDE
  3. MORPHINE SULFATE IMMEDIATE RELEASE [Concomitant]
  4. COTRIMOXAZOLE [Concomitant]
     Active Substance: SULFAMETHOXAZOLE\TRIMETHOPRIM
  5. IFOSFAMIDE. [Suspect]
     Active Substance: IFOSFAMIDE
     Indication: OSTEOSARCOMA RECURRENT
     Route: 041
     Dates: start: 20160608, end: 20160610
  6. ETOPOSIDE. [Suspect]
     Active Substance: ETOPOSIDE
     Route: 041
     Dates: start: 20160827, end: 20160829
  7. MOVICOL [Concomitant]
     Active Substance: POLYETHYLENE GLYCOL 3350\POTASSIUM CHLORIDE\SODIUM BICARBONATE\SODIUM CHLORIDE
  8. IFOSFAMIDE. [Suspect]
     Active Substance: IFOSFAMIDE
     Route: 041
     Dates: start: 20160908, end: 20160910
  9. MACROGOL 3350 [Concomitant]
     Active Substance: POLYETHYLENE GLYCOL 3350
  10. NORETHISTERONE [Concomitant]
     Active Substance: NORETHINDRONE
  11. DICLOFENAC [Concomitant]
     Active Substance: DICLOFENAC
  12. CIPROFLOXACIN. [Concomitant]
     Active Substance: CIPROFLOXACIN
  13. HYOSCINE BUTYLBROMIDE [Concomitant]
     Active Substance: BUTYLSCOPOLAMINE
  14. IFOSFAMIDE. [Suspect]
     Active Substance: IFOSFAMIDE
     Route: 041
     Dates: start: 20160827, end: 20160829
  15. LORAZEPAM. [Concomitant]
     Active Substance: LORAZEPAM
  16. DIAZEPAM. [Concomitant]
     Active Substance: DIAZEPAM
  17. LENVATINIB [Suspect]
     Active Substance: LENVATINIB
     Route: 048
     Dates: start: 20160705, end: 20160810
  18. ETOPOSIDE. [Suspect]
     Active Substance: ETOPOSIDE
     Indication: OSTEOSARCOMA RECURRENT
     Route: 041
     Dates: start: 20160608, end: 20160610
  19. PARACETAMOL [Concomitant]
     Active Substance: ACETAMINOPHEN
  20. CETIRIZINE [Concomitant]
     Active Substance: CETIRIZINE HYDROCHLORIDE
  21. LENVATINIB [Suspect]
     Active Substance: LENVATINIB
     Indication: OSTEOSARCOMA RECURRENT
     Route: 048
     Dates: start: 20160608, end: 20160624
  22. IFOSFAMIDE. [Suspect]
     Active Substance: IFOSFAMIDE
     Route: 041
     Dates: start: 20160704, end: 20160706
  23. ETOPOSIDE. [Suspect]
     Active Substance: ETOPOSIDE
     Route: 041
     Dates: start: 20160704, end: 20160706
  24. LOESTRIN TABLETS [Concomitant]
  25. CYCLIZINE [Concomitant]
     Active Substance: CYCLIZINE
  26. LEVOTHYROXINE. [Concomitant]
     Active Substance: LEVOTHYROXINE
  27. LENVATINIB [Suspect]
     Active Substance: LENVATINIB
     Route: 048
     Dates: start: 20160908, end: 20160916

REACTIONS (1)
  - Febrile neutropenia [Recovered/Resolved]

NARRATIVE: CASE EVENT DATE: 20160622
